FAERS Safety Report 6112751-1 (Version None)
Quarter: 2009Q1

REPORT INFORMATION
  Report Type: 
  Country: None (occurrence: None)
  Receive Date: 20090312
  Receipt Date: 20090310
  Transmission Date: 20090719
  Serious: Yes (Death)
  Sender: FDA-Public Use
  Company Number: DE-ASTRAZENECA-2009PK00821

PATIENT
  Age: 32 Year
  Sex: Male
  Weight: 100 kg

DRUGS (1)
  1. PROPOFOL [Suspect]
     Indication: ANALGESIA
     Dosage: MAX. 2MG/KG
     Route: 042
     Dates: start: 20090112, end: 20090117

REACTIONS (1)
  - MULTI-ORGAN FAILURE [None]
